FAERS Safety Report 25127136 (Version 1)
Quarter: 2025Q1

REPORT INFORMATION
  Report Type: Spontaneous
  Country: US (occurrence: US)
  Receive Date: 20250327
  Receipt Date: 20250327
  Transmission Date: 20250408
  Serious: No
  Sender: UCB
  Company Number: US-UCBSA-2025008478

PATIENT
  Sex: Female

DRUGS (3)
  1. BIMZELX [Suspect]
     Active Substance: BIMEKIZUMAB-BKZX
     Indication: Dermatitis
     Dosage: 320 MILLIGRAM, EV 4 WEEKS, AT WEEKS 4, 8, 12, AND 16 THEN 2 PENS EVERY 8 WEEKS THEREAFTER
     Route: 058
     Dates: start: 202410
  2. BIMZELX [Suspect]
     Active Substance: BIMEKIZUMAB-BKZX
     Indication: Off label use
  3. TASIGNA [Suspect]
     Active Substance: NILOTINIB
     Indication: Product used for unknown indication

REACTIONS (2)
  - Psoriasis [Recovered/Resolved]
  - Off label use [Unknown]
